FAERS Safety Report 6290714-3 (Version None)
Quarter: 2009Q3

REPORT INFORMATION
  Report Type: 
  Country: None (occurrence: None)
  Receive Date: 20090730
  Receipt Date: 20090722
  Transmission Date: 20100115
  Serious: Yes (Hospitalization)
  Sender: FDA-Public Use
  Company Number: GB-AMGEN-QUU357022

PATIENT
  Sex: Male
  Weight: 125 kg

DRUGS (5)
  1. NEULASTA [Suspect]
     Indication: CHEMOTHERAPY
     Route: 065
  2. CARBOPLATIN [Concomitant]
  3. BLEOMYCIN SULFATE [Concomitant]
  4. ETOPOSIDE [Concomitant]
  5. PLATINUM [Concomitant]

REACTIONS (3)
  - DRUG INEFFECTIVE [None]
  - NEUTROPHIL COUNT DECREASED [None]
  - PYREXIA [None]
